FAERS Safety Report 9407997 (Version 4)
Quarter: 2013Q4

REPORT INFORMATION
  Report Type: Report from Study
  Country: CA (occurrence: CA)
  Receive Date: 20130718
  Receipt Date: 20131107
  Transmission Date: 20140711
  Serious: Yes (Death, Hospitalization, Other)
  Sender: FDA-Public Use
  Company Number: CA-TEVA-419825USA

PATIENT
  Age: 67 Year
  Sex: Male
  Weight: 96.8 kg

DRUGS (12)
  1. BENDAMUSTINE [Suspect]
     Indication: CHRONIC LYMPHOCYTIC LEUKAEMIA
     Dosage: EVERY 28 DAYS
     Route: 042
     Dates: start: 20130501
  2. BENDAMUSTINE [Suspect]
     Indication: LYMPHOCYTIC LEUKAEMIA
     Dosage: EVERY 28 DAYS
     Route: 042
     Dates: start: 20130529
  3. RITUXIMAB [Suspect]
     Indication: CHRONIC LYMPHOCYTIC LEUKAEMIA
     Dosage: EVERY 28 DAYS
     Route: 042
     Dates: start: 20130430
  4. RITUXIMAB [Suspect]
     Indication: LYMPHOCYTIC LEUKAEMIA
     Route: 042
     Dates: start: 20130528
  5. PLACEBO [Suspect]
     Indication: CHRONIC LYMPHOCYTIC LEUKAEMIA
     Dosage: UID/QD
     Route: 048
     Dates: start: 20130501, end: 20130618
  6. PLACEBO [Suspect]
     Indication: LYMPHOCYTIC LEUKAEMIA
  7. ASA [Concomitant]
     Indication: PROPHYLAXIS
     Dosage: 81 MILLIGRAM DAILY;
     Route: 048
  8. BISOPROLOL [Concomitant]
     Indication: HYPERTENSION
     Dosage: 2.5 MILLIGRAM DAILY;
  9. DALTEPARIN [Concomitant]
     Indication: PROPHYLAXIS
     Route: 058
  10. DEXAMETHASONE [Concomitant]
     Indication: PREMEDICATION
     Dosage: 8 MILLIGRAM DAILY;
     Route: 048
  11. DIPHENHYDRAMINE [Concomitant]
     Indication: PREMEDICATION
     Dosage: 50 MILLIGRAM DAILY;
     Route: 048
  12. HYDROCORTISONE [Concomitant]
     Indication: PREMEDICATION
     Dosage: 100 MILLIGRAM DAILY;
     Route: 042

REACTIONS (3)
  - Death [Fatal]
  - Peripheral ischaemia [Recovered/Resolved with Sequelae]
  - Thrombosis [Unknown]
